FAERS Safety Report 10349812 (Version 1)
Quarter: 2014Q3

REPORT INFORMATION
  Report Type: Spontaneous
  Country: US (occurrence: US)
  Receive Date: 20140730
  Receipt Date: 20140730
  Transmission Date: 20150326
  Serious: Yes (Hospitalization, Other)
  Sender: FDA-Public Use
  Company Number: US-009507513-1407USA009961

PATIENT
  Sex: Female

DRUGS (1)
  1. NUVARING [Suspect]
     Active Substance: ETHINYL ESTRADIOL\ETONOGESTREL
     Indication: CHEMICAL CONTRACEPTION
     Dosage: UNK
     Route: 067
     Dates: start: 200908, end: 20091101

REACTIONS (9)
  - Pulmonary granuloma [Unknown]
  - Depression [Unknown]
  - Anxiety disorder [Unknown]
  - Pulmonary embolism [Unknown]
  - Influenza like illness [Recovering/Resolving]
  - Nausea [Recovering/Resolving]
  - Post-traumatic stress disorder [Unknown]
  - Atelectasis [Unknown]
  - Adverse drug reaction [Recovering/Resolving]

NARRATIVE: CASE EVENT DATE: 200910
